FAERS Safety Report 8732495 (Version 3)
Quarter: 2015Q1

REPORT INFORMATION
  Report Type: Spontaneous
  Country: MX (occurrence: MX)
  Receive Date: 20120820
  Receipt Date: 20150330
  Transmission Date: 20150721
  Serious: Yes (Hospitalization, Other)
  Sender: FDA-Public Use
  Company Number: PHHY2012MX071496

PATIENT
  Age: 76 Year
  Sex: Female

DRUGS (3)
  1. CO-DIOVAN [Suspect]
     Active Substance: HYDROCHLOROTHIAZIDE\VALSARTAN
     Dosage: 0.5 DF (160/25 MG)
     Route: 065
  2. CO-DIOVAN [Suspect]
     Active Substance: HYDROCHLOROTHIAZIDE\VALSARTAN
     Dosage: 0.5 DF (160/12.5 MG), QD
     Dates: start: 201208
  3. CO-DIOVAN [Suspect]
     Active Substance: HYDROCHLOROTHIAZIDE\VALSARTAN
     Indication: HYPERTENSION
     Dosage: 1 DF (160/25 MG), QD
     Dates: start: 200909

REACTIONS (4)
  - Bile duct stone [Recovered/Resolved]
  - Haemobilia [Recovering/Resolving]
  - Wrong technique in drug usage process [Not Recovered/Not Resolved]
  - Renal neoplasm [Not Recovered/Not Resolved]

NARRATIVE: CASE EVENT DATE: 20120712
